FAERS Safety Report 9549896 (Version 2)
Quarter: 2013Q3

REPORT INFORMATION
  Report Type: Spontaneous
  Country: US (occurrence: US)
  Receive Date: 20130924
  Receipt Date: 20130930
  Transmission Date: 20140515
  Serious: Yes (Disabling, Other)
  Sender: FDA-Public Use
  Company Number: CHPA2013US014537

PATIENT
  Age: 73 Year
  Sex: Female

DRUGS (2)
  1. VOLTAREN GEL [Suspect]
     Indication: OSTEOARTHRITIS
     Dosage: LITTLE DAB, HALF AN INCH, QD
     Route: 061
     Dates: start: 20130610
  2. ANTICOAGULANTS [Concomitant]

REACTIONS (3)
  - Arthropathy [Not Recovered/Not Resolved]
  - Blood disorder [Not Recovered/Not Resolved]
  - Underdose [Unknown]
